APPROVED DRUG PRODUCT: LINZESS
Active Ingredient: LINACLOTIDE
Strength: 72MCG
Dosage Form/Route: CAPSULE;ORAL
Application: N202811 | Product #003
Applicant: ABBVIE INC
Approved: Jan 25, 2017 | RLD: Yes | RS: Yes | Type: RX

PATENTS:
Patent 9708371 | Expires: Aug 16, 2033
Patent 7304036 | Expires: Aug 30, 2026
Patent 8933030 | Expires: Feb 17, 2031
Patent 10702576 | Expires: Aug 11, 2031
Patent 9708371 | Expires: Aug 16, 2033
Patent 8933030 | Expires: Feb 17, 2031
Patent 10702576 | Expires: Aug 11, 2031
Patent 7304036 | Expires: Aug 30, 2026
Patent 10675325 | Expires: Aug 11, 2031
Patent 9708371*PED | Expires: Feb 16, 2034
Patent 7304036*PED | Expires: Feb 28, 2027
Patent 8933030*PED | Expires: Aug 17, 2031
Patent 10675325*PED | Expires: Feb 11, 2032
Patent 10702576*PED | Expires: Feb 11, 2032

EXCLUSIVITY:
Code: I-921 | Date: Jun 12, 2026